FAERS Safety Report 9285651 (Version 1)
Quarter: 2013Q2

REPORT INFORMATION
  Report Type: Spontaneous
  Country: US (occurrence: None)
  Receive Date: 20130507
  Receipt Date: 20130507
  Transmission Date: 20140414
  Serious: Yes (Other)
  Sender: FDA-Public Use
  Company Number: TPA2013A03194

PATIENT
  Age: 66 Year
  Sex: Male
  Weight: 88.45 kg

DRUGS (9)
  1. ACTOS [Suspect]
     Indication: PRODUCT USED FOR UNKNOWN INDICATION
  2. CADUET [Suspect]
     Indication: CARDIOVASCULAR EVENT PROPHYLAXIS
     Route: 048
     Dates: end: 20130411
  3. LIPITOR (ATORVASTATIN CALCIUM) [Concomitant]
  4. COREG (CARVEDILOL) [Concomitant]
  5. PLAVIX (CLOPIDOGREL BISULFATE) [Concomitant]
  6. ASPIRIN (ACETYLSALICYLIC ACID) [Concomitant]
  7. TRICOR (FENOFIBRATE) [Concomitant]
  8. ZETIA  (EZETIMIBE) [Concomitant]
  9. ACCUPRIL (QUINAPRIL HYDROCHLORIDE) [Concomitant]

REACTIONS (4)
  - Off label use [None]
  - Local swelling [None]
  - Joint swelling [None]
  - Renal disorder [None]
